FAERS Safety Report 19905503 (Version 1)
Quarter: 2021Q3

REPORT INFORMATION
  Report Type: Report from Study
  Country: US (occurrence: US)
  Receive Date: 20210930
  Receipt Date: 20210930
  Transmission Date: 20211014
  Serious: Yes (Other)
  Sender: FDA-Public Use
  Company Number: US-IPSEN BIOPHARMACEUTICALS, INC.-2021-23254

PATIENT
  Age: 61 Year
  Sex: Female

DRUGS (4)
  1. SOMATULINE DEPOT [Suspect]
     Active Substance: LANREOTIDE ACETATE
     Indication: OFF LABEL USE
  2. TEMOZOLOMIDE. [Suspect]
     Active Substance: TEMOZOLOMIDE
     Indication: PRODUCT USED FOR UNKNOWN INDICATION
     Route: 065
  3. SOMATULINE DEPOT [Suspect]
     Active Substance: LANREOTIDE ACETATE
     Indication: CARCINOID TUMOUR PULMONARY
     Dosage: 120 MG/0.5 ML
     Route: 058
     Dates: start: 202006
  4. CAPECITABINE. [Suspect]
     Active Substance: CAPECITABINE
     Indication: PRODUCT USED FOR UNKNOWN INDICATION
     Route: 065

REACTIONS (10)
  - Alopecia [Recovering/Resolving]
  - Abdominal pain [Recovering/Resolving]
  - Cholelithiasis [Recovering/Resolving]
  - Nausea [Recovered/Resolved]
  - Defaecation disorder [Recovering/Resolving]
  - Off label use [Unknown]
  - Diarrhoea [Recovering/Resolving]
  - Defaecation urgency [Recovering/Resolving]
  - Biliary obstruction [Recovering/Resolving]
  - Injection site cyst [Recovering/Resolving]

NARRATIVE: CASE EVENT DATE: 202006
